FAERS Safety Report 7244404-0 (Version None)
Quarter: 2011Q1

REPORT INFORMATION
  Report Type: 
  Country: None (occurrence: None)
  Receive Date: 20110119
  Receipt Date: 20110119
  Transmission Date: 20110831
  Serious: Yes (Death, Hospitalization)
  Sender: FDA-Public Use
  Company Number: None

PATIENT
  Sex: Male
  Weight: 70.3075 kg

DRUGS (3)
  1. PAZOPANIB 200MG GSK [Suspect]
     Indication: LUNG NEOPLASM MALIGNANT
     Dosage: 400MG BID PO
     Route: 048
     Dates: start: 20100602, end: 20101228
  2. PEGFILGRASTIM 6MG AMGEN [Suspect]
     Indication: NEUTROPENIA
     Dosage: 6MG ONCE SQ
     Dates: start: 20101228, end: 20101228
  3. ARANESP [Concomitant]

REACTIONS (4)
  - RESTLESSNESS [None]
  - BLOOD PRESSURE IMMEASURABLE [None]
  - CONFUSIONAL STATE [None]
  - ACUTE MYELOID LEUKAEMIA [None]
